FAERS Safety Report 4405802-3 (Version None)
Quarter: 2004Q3

REPORT INFORMATION
  Report Type: 
  Country: None (occurrence: None)
  Receive Date: 20040723
  Receipt Date: 20031212
  Transmission Date: 20050211
  Serious: No
  Sender: FDA-Public Use
  Company Number: US-GLAXOSMITHKLINE-A0443817A

PATIENT
  Age: 62 Year
  Sex: Male

DRUGS (16)
  1. AVANDIA [Suspect]
     Dosage: 4MG TWICE PER DAY
     Route: 048
  2. PROGRAF [Concomitant]
     Dosage: 4MG TWICE PER DAY
  3. BACTRIM DS [Concomitant]
     Dosage: 800MG ALTERNATE DAYS
  4. DOMPERIDONE [Concomitant]
     Dosage: 10MG THREE TIMES PER DAY
  5. LIPITOR [Concomitant]
     Dosage: 10MG PER DAY
  6. NEXIUM [Concomitant]
     Dosage: 40MG TWICE PER DAY
  7. MULTI-VITAMIN [Concomitant]
  8. LISINOPRIL [Concomitant]
     Dosage: 2.5MG PER DAY
  9. LANTUS [Concomitant]
     Dosage: 6UNIT AT NIGHT
  10. NOVOLOG [Concomitant]
     Dosage: 2UNIT THREE TIMES PER DAY
  11. VITAMIN E [Concomitant]
  12. FOLIC ACID [Concomitant]
  13. ASPIRIN [Concomitant]
     Dosage: 81MG PER DAY
  14. CALCIUM [Concomitant]
     Dosage: 600MG TWICE PER DAY
  15. FLOMAX [Concomitant]
     Dosage: .4MG AT NIGHT
  16. UNKNOWN MEDICATION [Concomitant]

REACTIONS (2)
  - ASTHENIA [None]
  - BLOOD PRESSURE DECREASED [None]
